FAERS Safety Report 10244390 (Version 1)
Quarter: 2014Q1

REPORT INFORMATION
  Report Type: Spontaneous
  Country: US (occurrence: None)
  Receive Date: 20140306
  Receipt Date: 20140306
  Transmission Date: 20141002
  Serious: Yes (Hospitalization)
  Sender: FDA-Public Use
  Company Number: 163-21880-13011601

PATIENT
  Age: 63 Year
  Sex: Female
  Weight: 86.7 kg

DRUGS (8)
  1. REVLIMID (LENALIDOMIDE) (10 MILLIGRAM, CAPSULES) [Suspect]
     Indication: PLASMA CELL MYELOMA
     Route: 048
     Dates: start: 201102
  2. BENAZEPRIL HCL (BENAZEPRIL HYDROCHLORIDE) (UNKNOWN) [Concomitant]
  3. LANTUS (INSULIN GLARGINE) [Concomitant]
  4. LIPITOR (ATORVASTATIN) (TABLETS) [Concomitant]
  5. METOPROLOL SUCCINATE (METOPROLOL SUCCINATE) (UNKNOWN) [Concomitant]
  6. OXYCONTIN (OXYCODONE HYDROCHLORIDE) (TABLETS) [Concomitant]
  7. TRAZODONE HCL (TRAZODONE HYDROCHLORIDE) (UNKNOWN) [Concomitant]
  8. CARFILZOMIB (CARFILZOMIB) (UNKNOWN) [Concomitant]

REACTIONS (2)
  - Plasma cell myeloma [None]
  - Back pain [None]
